APPROVED DRUG PRODUCT: LIDOCAINE HYDROCHLORIDE VISCOUS
Active Ingredient: LIDOCAINE HYDROCHLORIDE
Strength: 2%
Dosage Form/Route: SOLUTION;ORAL
Application: A218138 | Product #001 | TE Code: AT
Applicant: PAI HOLDINGS LLC DBA PHARMACEUTICAL ASSOCIATES INC
Approved: Feb 20, 2024 | RLD: No | RS: No | Type: RX